FAERS Safety Report 9685987 (Version 1)
Quarter: 2013Q4

REPORT INFORMATION
  Report Type: Spontaneous
  Country: US (occurrence: US)
  Receive Date: 20131113
  Receipt Date: 20131113
  Transmission Date: 20140711
  Serious: No
  Sender: FDA-Public Use
  Company Number: US-ALLERGAN-1306082US

PATIENT
  Age: 81 Year
  Sex: Female

DRUGS (2)
  1. COMBIGAN[R] [Suspect]
     Indication: INTRAOCULAR PRESSURE INCREASED
     Dosage: 2 GTT, BID
     Route: 047
     Dates: start: 2012
  2. HEART MEDICATION NOS [Concomitant]
     Indication: HEART RATE INCREASED
     Dosage: UNK

REACTIONS (6)
  - Pain [Recovered/Resolved]
  - Medication residue present [Recovered/Resolved]
  - Drug hypersensitivity [Recovered/Resolved]
  - Eyelids pruritus [Recovered/Resolved]
  - Erythema of eyelid [Recovered/Resolved]
  - Eyelid oedema [Recovered/Resolved]
